FAERS Safety Report 8329917-2 (Version None)
Quarter: 2012Q2

REPORT INFORMATION
  Report Type: 
  Country: None (occurrence: None)
  Receive Date: 20120502
  Receipt Date: 20120423
  Transmission Date: 20120825
  Serious: Yes (Hospitalization, Other)
  Sender: FDA-Public Use
  Company Number: BR-ABBOTT-12P-020-0926409-00

PATIENT
  Sex: Female

DRUGS (3)
  1. HUMIRA [Suspect]
     Indication: RHEUMATOID ARTHRITIS
  2. UNKNOWN DRUG [Concomitant]
     Indication: HYPERTENSION
  3. UNKNOWN DRUG [Concomitant]
     Indication: CARDIAC DISORDER

REACTIONS (2)
  - BRAIN NEOPLASM [None]
  - HEADACHE [None]
